FAERS Safety Report 6474728-6 (Version None)
Quarter: 2009Q4

REPORT INFORMATION
  Report Type: 
  Country: None (occurrence: None)
  Receive Date: 20091204
  Receipt Date: 20091127
  Transmission Date: 20100525
  Serious: Yes (Hospitalization)
  Sender: FDA-Public Use
  Company Number: B0604087A

PATIENT
  Sex: Female
  Weight: 68 kg

DRUGS (8)
  1. LAPATINIB [Suspect]
     Dosage: 1250MG PER DAY
     Route: 048
     Dates: start: 20090429
  2. TAXOL [Suspect]
     Dosage: 140MG CYCLIC
     Route: 042
     Dates: start: 20090429
  3. RAMIPRIL [Concomitant]
     Indication: HYPERTENSION
     Dates: start: 20060101
  4. FELODIPINE [Concomitant]
     Indication: HYPERTENSION
     Dates: start: 20060101
  5. PALLADONE [Concomitant]
     Indication: PAIN
     Dates: start: 20090421
  6. IBUPROFEN [Concomitant]
     Indication: PAIN
     Dates: start: 20090421
  7. INNOHEP [Concomitant]
     Indication: VENOUS THROMBOSIS
     Dates: start: 20090403
  8. DEXAMETHASONE TAB [Concomitant]
     Indication: PROPHYLAXIS
     Dates: start: 20090429

REACTIONS (4)
  - CYSTITIS [None]
  - INFECTION [None]
  - PNEUMONIA [None]
  - PYREXIA [None]
